FAERS Safety Report 21578142 (Version 2)
Quarter: 2022Q4

REPORT INFORMATION
  Report Type: Report from Study
  Country: US (occurrence: US)
  Receive Date: 20221110
  Receipt Date: 20221114
  Transmission Date: 20230113
  Serious: Yes (Other)
  Sender: FDA-Public Use
  Company Number: US-ABBVIE-4175426

PATIENT
  Age: 72 Year

DRUGS (1)
  1. HUMIRA [Suspect]
     Active Substance: ADALIMUMAB
     Indication: Psoriasis
     Dosage: FORM STRENGTH: 40 MG?CITRATE FREE
     Route: 058

REACTIONS (5)
  - Anaphylactic reaction [Unknown]
  - Arthralgia [Unknown]
  - Adverse reaction [Unknown]
  - Alopecia [Unknown]
  - Spinal fracture [Unknown]

NARRATIVE: CASE EVENT DATE: 20221022
